FAERS Safety Report 4880309-8 (Version None)
Quarter: 2006Q1

REPORT INFORMATION
  Report Type: 
  Country: None (occurrence: None)
  Receive Date: 20060113
  Receipt Date: 20051214
  Transmission Date: 20060701
  Serious: Yes (Other)
  Sender: FDA-Public Use
  Company Number: PHBS2005JP18647

PATIENT
  Sex: Female

DRUGS (3)
  1. AREDIA [Suspect]
     Indication: METASTASES TO BONE
     Dosage: 90 MG
     Route: 042
  2. FARMORUBICIN [Suspect]
     Route: 042
  3. ENDOXAN [Suspect]
     Route: 042

REACTIONS (1)
  - NEUTROPHIL COUNT ABNORMAL [None]
